FAERS Safety Report 9102139 (Version 1)
Quarter: 2013Q1

REPORT INFORMATION
  Report Type: Spontaneous
  Country: US (occurrence: US)
  Receive Date: 20130218
  Receipt Date: 20130218
  Transmission Date: 20140127
  Serious: Yes (Other)
  Sender: FDA-Public Use
  Company Number: US-ROCHE-791322

PATIENT
  Sex: Female
  Weight: 96.25 kg

DRUGS (2)
  1. ACCUTANE [Suspect]
     Indication: ACNE CYSTIC
     Route: 065
     Dates: start: 1982, end: 1983
  2. ORTHO-NOVUM [Concomitant]
     Indication: CONTRACEPTION

REACTIONS (7)
  - Inflammatory bowel disease [Unknown]
  - Crohn^s disease [Unknown]
  - Colitis ulcerative [Unknown]
  - Depression [Unknown]
  - Mental disorder [Unknown]
  - Emotional distress [Unknown]
  - Large intestine polyp [Unknown]
